FAERS Safety Report 7400872-2 (Version None)
Quarter: 2011Q2

REPORT INFORMATION
  Report Type: 
  Country: None (occurrence: None)
  Receive Date: 20110407
  Receipt Date: 20110401
  Transmission Date: 20111010
  Serious: Yes (Life-Threatening, Hospitalization, Other)
  Sender: FDA-Public Use
  Company Number: JP-PFIZER INC-2011037830

PATIENT
  Age: 49 Year
  Sex: Male

DRUGS (8)
  1. SEROQUEL [Suspect]
     Dosage: 100 MG, 1X/DAY
     Route: 048
     Dates: start: 20110210
  2. CHAMPIX [Suspect]
     Dosage: 0.5 MG, 2X/DAY
     Route: 048
     Dates: start: 20101018, end: 20101021
  3. SEROQUEL [Suspect]
     Indication: INSOMNIA
     Dosage: 25 MG, 1X/DAY
     Route: 048
     Dates: start: 20110118, end: 20110209
  4. ALCOHOL [Suspect]
  5. CHAMPIX [Suspect]
     Indication: NICOTINE DEPENDENCE
     Dosage: 0.5 MG, 1X/DAY
     Route: 048
     Dates: start: 20101015, end: 20101017
  6. CHAMPIX [Suspect]
     Dosage: 1 MG, 2X/DAY
     Route: 048
     Dates: start: 20101022, end: 20110106
  7. ZOLOFT [Suspect]
     Indication: DEPRESSION
     Dosage: 25 MG, 4X/DAY
     Route: 048
     Dates: start: 20110210, end: 20110101
  8. CHAMPIX [Suspect]
     Dosage: 1 MG, 2X/DAY
     Route: 048
     Dates: start: 20110115, end: 20110117

REACTIONS (18)
  - ANXIETY [None]
  - DISTURBANCE IN ATTENTION [None]
  - DISORIENTATION [None]
  - SUICIDE ATTEMPT [None]
  - THINKING ABNORMAL [None]
  - FEELING ABNORMAL [None]
  - INTENTIONAL OVERDOSE [None]
  - INSOMNIA [None]
  - TREMOR [None]
  - LACERATION [None]
  - MALAISE [None]
  - NERVOUS SYSTEM DISORDER [None]
  - JUDGEMENT IMPAIRED [None]
  - DEPRESSION [None]
  - DEPRESSED LEVEL OF CONSCIOUSNESS [None]
  - APATHY [None]
  - HEAD DISCOMFORT [None]
  - DYSCALCULIA [None]
